FAERS Safety Report 5257466-7 (Version None)
Quarter: 2007Q1

REPORT INFORMATION
  Report Type: 
  Country: None (occurrence: None)
  Receive Date: 20070307
  Receipt Date: 20060831
  Transmission Date: 20070707
  Serious: No
  Sender: FDA-Public Use
  Company Number: US-GLAXOSMITHKLINE-A0616308A

PATIENT
  Age: 48 Year
  Sex: Female
  Weight: 145.9 kg

DRUGS (8)
  1. REQUIP [Suspect]
     Indication: RESTLESS LEGS SYNDROME
     Dosage: 1MG AT NIGHT
     Route: 048
     Dates: start: 20051212
  2. LABETALOL HCL [Concomitant]
  3. TRIAMTERENE AND HYDROCHLOROTHIAZIDE [Concomitant]
     Route: 048
  4. METHYLDOPA [Concomitant]
  5. MOBIC [Concomitant]
     Dosage: 15MG PER DAY
     Route: 048
  6. AMBIEN [Concomitant]
     Dosage: 5MG PER DAY
     Route: 048
  7. FLONASE [Concomitant]
     Dosage: 2PUFF AS REQUIRED
  8. CITALOPRAM HYDROBROMIDE [Concomitant]
     Dosage: 20MG PER DAY
     Route: 048

REACTIONS (1)
  - MUSCLE SPASMS [None]
